FAERS Safety Report 5741150-7 (Version None)
Quarter: 2008Q2

REPORT INFORMATION
  Report Type: 
  Country: None (occurrence: None)
  Receive Date: 20080514
  Receipt Date: 20080428
  Transmission Date: 20081010
  Serious: Yes (Death, Hospitalization)
  Sender: FDA-Public Use
  Company Number: 2008PL000058

PATIENT
  Age: 35 Month
  Sex: Male

DRUGS (3)
  1. IMURAN [Suspect]
     Indication: IMMUNOSUPPRESSANT DRUG THERAPY
  2. AMLODIPINE [Concomitant]
  3. TACROLIMUS [Concomitant]

REACTIONS (16)
  - ASCITES [None]
  - CARDIAC MURMUR [None]
  - CYTOGENETIC ABNORMALITY [None]
  - DIALYSIS [None]
  - DRUG TOXICITY [None]
  - HEPATOBLASTOMA [None]
  - INFERIOR VENA CAVAL OCCLUSION [None]
  - INTRACARDIAC THROMBUS [None]
  - LETHARGY [None]
  - LIVER PALPABLE SUBCOSTAL [None]
  - MULTI-ORGAN DISORDER [None]
  - PLEURAL EFFUSION [None]
  - PULMONARY OEDEMA [None]
  - RENAL FAILURE [None]
  - TACHYPNOEA [None]
  - VENTRICULAR TACHYCARDIA [None]
